FAERS Safety Report 5774393-7 (Version None)
Quarter: 2008Q2

REPORT INFORMATION
  Report Type: 
  Country: None (occurrence: None)
  Receive Date: 20080616
  Receipt Date: 20080610
  Transmission Date: 20081010
  Serious: Yes (Other)
  Sender: FDA-Public Use
  Company Number: TR-SANOFI-SYNTHELABO-A01200806423

PATIENT
  Age: 29 Year
  Sex: Female
  Weight: 85 kg

DRUGS (1)
  1. MEPERIDINE HCL [Suspect]
     Indication: ANALGESIA
     Dosage: 80 MG
     Route: 041

REACTIONS (2)
  - DISORIENTATION [None]
  - RETROGRADE AMNESIA [None]
